FAERS Safety Report 5251371-8 (Version None)
Quarter: 2007Q1

REPORT INFORMATION
  Report Type: 
  Country: None (occurrence: None)
  Receive Date: 20070228
  Receipt Date: 20060502
  Transmission Date: 20070707
  Serious: No
  Sender: FDA-Public Use
  Company Number: US-GLAXOSMITHKLINE-A0604050A

PATIENT
  Sex: Male

DRUGS (7)
  1. LAMICTAL [Suspect]
     Indication: EPILEPSY
     Route: 048
     Dates: start: 19950101
  2. PRIMIDONE [Concomitant]
  3. ACETAZOLAMIDE [Concomitant]
  4. PROTONIX [Concomitant]
  5. ALLEGRA [Concomitant]
  6. ATIVAN [Concomitant]
  7. FOLIC ACID [Concomitant]

REACTIONS (6)
  - DRUG INEFFECTIVE [None]
  - HICCUPS [None]
  - MALAISE [None]
  - OVERDOSE [None]
  - RASH [None]
  - SNORING [None]
